FAERS Safety Report 13971778 (Version 1)
Quarter: 2017Q3

REPORT INFORMATION
  Report Type: Spontaneous
  Country: US (occurrence: US)
  Receive Date: 20170914
  Receipt Date: 20170914
  Transmission Date: 20171128
  Serious: No
  Sender: FDA-Public Use
  Company Number: None

PATIENT
  Age: 52 Year
  Sex: Female
  Weight: 60.75 kg

DRUGS (4)
  1. GLIMEPRIDE [Concomitant]
     Active Substance: GLIMEPIRIDE
  2. METHOTREXATE. [Concomitant]
     Active Substance: METHOTREXATE
  3. OTEZLA [Suspect]
     Active Substance: APREMILAST
     Indication: PSORIATIC ARTHROPATHY
     Route: 048
     Dates: start: 20170909, end: 20170914
  4. OTEZLA [Suspect]
     Active Substance: APREMILAST
     Indication: INFLAMMATION
     Route: 048
     Dates: start: 20170909, end: 20170914

REACTIONS (10)
  - Pain in extremity [None]
  - Nausea [None]
  - Gastrointestinal disorder [None]
  - Dizziness [None]
  - Decreased appetite [None]
  - Musculoskeletal pain [None]
  - Fatigue [None]
  - Neck pain [None]
  - Spinal pain [None]
  - Migraine [None]

NARRATIVE: CASE EVENT DATE: 20170914
